FAERS Safety Report 9736244 (Version 1)
Quarter: 2013Q4

REPORT INFORMATION
  Report Type: Spontaneous
  Country: US (occurrence: US)
  Receive Date: 20131206
  Receipt Date: 20131206
  Transmission Date: 20140711
  Serious: Yes (Death, Other)
  Sender: FDA-Public Use
  Company Number: US-ELI_LILLY_AND_COMPANY-US201311009110

PATIENT
  Age: 44 Year
  Sex: Female

DRUGS (2)
  1. ZYPREXA [Suspect]
     Indication: PRODUCT USED FOR UNKNOWN INDICATION
     Dosage: 5 MG, QD
     Route: 048
     Dates: start: 201310
  2. ABILIFY [Suspect]
     Indication: SCHIZOPHRENIA
     Dosage: 400 MG, MONTHLY (1/M)
     Route: 030
     Dates: start: 201306, end: 2013

REACTIONS (4)
  - Death [Fatal]
  - Eating disorder [Unknown]
  - Affective disorder [Unknown]
  - Social avoidant behaviour [Unknown]
